FAERS Safety Report 4999838-1 (Version None)
Quarter: 2006Q2

REPORT INFORMATION
  Report Type: 
  Country: None (occurrence: None)
  Receive Date: 20060509
  Receipt Date: 20060428
  Transmission Date: 20061013
  Serious: Yes (Life-Threatening, Hospitalization, Disabling)
  Sender: FDA-Public Use
  Company Number: 2005-00358

PATIENT
  Age: 60 Year
  Sex: Male
  Weight: 84.3 kg

DRUGS (1)
  1. VELCADE [Suspect]
     Indication: MULTIPLE MYELOMA
     Dosage: 2.60 MG, INTRAVENOUS
     Route: 042
     Dates: start: 20041129, end: 20050210

REACTIONS (12)
  - CHEST PAIN [None]
  - CONSTIPATION [None]
  - DEEP VEIN THROMBOSIS [None]
  - DISEASE PROGRESSION [None]
  - HAEMOGLOBIN DECREASED [None]
  - INTERVERTEBRAL DISC PROTRUSION [None]
  - LOBAR PNEUMONIA [None]
  - LYMPHOCYTE COUNT DECREASED [None]
  - PLATELET COUNT DECREASED [None]
  - RED BLOOD CELL COUNT DECREASED [None]
  - SPINAL CORD COMPRESSION [None]
  - URINARY RETENTION [None]
